FAERS Safety Report 4994519-2 (Version None)
Quarter: 2006Q2

REPORT INFORMATION
  Report Type: 
  Country: None (occurrence: None)
  Receive Date: 20060505
  Receipt Date: 20040720
  Transmission Date: 20061013
  Serious: Yes (Hospitalization)
  Sender: FDA-Public Use
  Company Number: US-MERCK-0407USA01741

PATIENT
  Age: 44 Year
  Sex: Male
  Weight: 90 kg

DRUGS (5)
  1. VIOXX [Suspect]
     Indication: BACK PAIN
     Route: 048
     Dates: start: 20000502, end: 20000511
  2. VIOXX [Suspect]
     Indication: INTERVERTEBRAL DISC DISPLACEMENT
     Route: 048
     Dates: start: 20000502, end: 20000511
  3. PEPCID [Concomitant]
     Route: 048
  4. PROZAC [Concomitant]
     Route: 065
     Dates: start: 19940601, end: 20020602
  5. KLONOPIN [Concomitant]
     Route: 065
     Dates: start: 19940601

REACTIONS (46)
  - ACUTE MYOCARDIAL INFARCTION [None]
  - BLOOD POTASSIUM DECREASED [None]
  - BLOOD PRESSURE INCREASED [None]
  - BRADYCARDIA [None]
  - BRONCHITIS [None]
  - BUNDLE BRANCH BLOCK RIGHT [None]
  - CARDIAC ARREST [None]
  - CARDIAC VALVE DISEASE [None]
  - CARDIOGENIC SHOCK [None]
  - CARDIOMEGALY [None]
  - CORONARY ARTERY DISEASE [None]
  - CORONARY ARTERY OCCLUSION [None]
  - COUGH [None]
  - DEPRESSION [None]
  - DERMAL CYST [None]
  - DIZZINESS [None]
  - EMOTIONAL DISTRESS [None]
  - ERUCTATION [None]
  - FATIGUE [None]
  - GASTRITIS [None]
  - GASTROOESOPHAGEAL REFLUX DISEASE [None]
  - HAEMORRHOIDS [None]
  - HYPERHOMOCYSTEINAEMIA [None]
  - HYPOKALAEMIA [None]
  - ISCHAEMIC CARDIOMYOPATHY [None]
  - MALAISE [None]
  - ORTHOSTATIC HYPOTENSION [None]
  - OTITIS MEDIA [None]
  - PHARYNGITIS STREPTOCOCCAL [None]
  - PHARYNGOLARYNGEAL PAIN [None]
  - PULMONARY CONGESTION [None]
  - SCLERITIS [None]
  - SEPSIS [None]
  - SINUS BRADYCARDIA [None]
  - SINUS CONGESTION [None]
  - SINUS DISORDER [None]
  - SKIN LESION [None]
  - STAPHYLOCOCCAL SEPSIS [None]
  - SUPRAVENTRICULAR EXTRASYSTOLES [None]
  - UPPER LIMB FRACTURE [None]
  - URINARY TRACT INFECTION [None]
  - VENTRICULAR DYSFUNCTION [None]
  - VENTRICULAR EXTRASYSTOLES [None]
  - VENTRICULAR FIBRILLATION [None]
  - VENTRICULAR TACHYCARDIA [None]
  - VIRAL INFECTION [None]
